FAERS Safety Report 15958533 (Version 2)
Quarter: 2019Q1

REPORT INFORMATION
  Report Type: Spontaneous
  Country: US (occurrence: US)
  Receive Date: 20190213
  Receipt Date: 20190312
  Transmission Date: 20190417
  Serious: Yes (Death, Hospitalization, Other)
  Sender: FDA-Public Use
  Company Number: US-009507513-1902USA004002

PATIENT
  Age: 86 Year
  Sex: Female
  Weight: 47.17 kg

DRUGS (2)
  1. KEYTRUDA [Suspect]
     Active Substance: PEMBROLIZUMAB
     Indication: PANCREATIC CARCINOMA
     Dosage: UNK
     Dates: start: 20181019
  2. KEYTRUDA [Suspect]
     Active Substance: PEMBROLIZUMAB
     Indication: MICROSATELLITE INSTABILITY CANCER
     Dosage: 2 DOSES OF KEYTRUDA
     Dates: start: 20180928

REACTIONS (14)
  - Disorientation [Unknown]
  - Headache [Unknown]
  - Cerebrovascular accident [Unknown]
  - Mental status changes [Unknown]
  - Visual impairment [Unknown]
  - Nausea [Unknown]
  - Flatulence [Unknown]
  - Abdominal distension [Unknown]
  - Death [Fatal]
  - Somnolence [Unknown]
  - Back pain [Unknown]
  - Vision blurred [Unknown]
  - Metamorphopsia [Unknown]
  - Decreased appetite [Unknown]

NARRATIVE: CASE EVENT DATE: 2018
